FAERS Safety Report 7543552-5 (Version None)
Quarter: 2011Q2

REPORT INFORMATION
  Report Type: 
  Country: None (occurrence: None)
  Receive Date: 20110613
  Receipt Date: 20020313
  Transmission Date: 20111010
  Serious: Yes (Other)
  Sender: FDA-Public Use
  Company Number: PHBS2002CA03734

PATIENT
  Sex: Male

DRUGS (1)
  1. CLOZAPINE [Suspect]
     Indication: SCHIZOPHRENIA
     Route: 048
     Dates: start: 20000329

REACTIONS (5)
  - HYPERTROPHIC CARDIOMYOPATHY [None]
  - CARDIAC SEPTAL DEFECT [None]
  - BLOOD PRESSURE INCREASED [None]
  - ANXIETY [None]
  - ELECTROCARDIOGRAM T WAVE ABNORMAL [None]
